FAERS Safety Report 5917404-8 (Version None)
Quarter: 2008Q4

REPORT INFORMATION
  Report Type: 
  Country: None (occurrence: None)
  Receive Date: 20081014
  Receipt Date: 20081013
  Transmission Date: 20090506
  Serious: Yes (Hospitalization, Other)
  Sender: FDA-Public Use
  Company Number: B0527877A

PATIENT
  Age: 57 Year
  Sex: Female
  Weight: 50 kg

DRUGS (2)
  1. TYVERB [Suspect]
     Dosage: 1250MG PER DAY
     Route: 048
     Dates: start: 20080529, end: 20080626
  2. XELODA [Suspect]
     Dosage: 2000MGM2 PER DAY
     Route: 048
     Dates: start: 20080529, end: 20080626

REACTIONS (4)
  - HEPATITIS CHOLESTATIC [None]
  - HYPERBILIRUBINAEMIA [None]
  - OCULAR ICTERUS [None]
  - PRURITUS [None]
